FAERS Safety Report 4403391-0 (Version None)
Quarter: 2004Q3

REPORT INFORMATION
  Report Type: 
  Country: None (occurrence: None)
  Receive Date: 20040721
  Receipt Date: 20040618
  Transmission Date: 20050211
  Serious: Yes (Hospitalization)
  Sender: FDA-Public Use
  Company Number: PHBS2004JP08070

PATIENT
  Age: 5 Year
  Sex: Female
  Weight: 20 kg

DRUGS (6)
  1. TEGRETOL [Suspect]
     Indication: EPILEPSY
     Dosage: 90 MG/DAY
     Route: 048
     Dates: start: 20040401, end: 20040414
  2. TEGRETOL [Suspect]
     Dosage: 120 MG/DAY
     Route: 048
     Dates: start: 20040415, end: 20040505
  3. TEGRETOL [Suspect]
     Dosage: 160 MG/DAY
     Route: 048
     Dates: start: 20040506, end: 20040519
  4. TEGRETOL [Suspect]
     Dosage: 200 MG/DAY
     Route: 048
     Dates: start: 20040520, end: 20040602
  5. TEGRETOL [Suspect]
     Dosage: 120 MG/DAY
     Route: 048
     Dates: start: 20040603, end: 20040617
  6. PHENYTOIN [Suspect]
     Indication: EPILEPSY
     Dosage: 50 MG, BID
     Route: 048
     Dates: start: 20040603

REACTIONS (6)
  - ALANINE AMINOTRANSFERASE INCREASED [None]
  - ASPARTATE AMINOTRANSFERASE INCREASED [None]
  - MUCOSAL INFLAMMATION [None]
  - RASH [None]
  - VIRAL INFECTION [None]
  - WHITE BLOOD CELL COUNT DECREASED [None]
